FAERS Safety Report 19358368 (Version 2)
Quarter: 2021Q3

REPORT INFORMATION
  Report Type: Spontaneous
  Country: US (occurrence: US)
  Receive Date: 20210602
  Receipt Date: 20210716
  Transmission Date: 20211014
  Serious: Yes (Death, Other)
  Sender: FDA-Public Use
  Company Number: US-STRIDES ARCOLAB LIMITED-2021SP005995

PATIENT
  Age: 68 Year
  Sex: Male

DRUGS (2)
  1. RANITIDINE. [Suspect]
     Active Substance: RANITIDINE
     Indication: DYSPEPSIA
     Dosage: UNK, (ZANTAC) DAILY
     Route: 048
     Dates: start: 201703, end: 201807
  2. RANITIDINE. [Suspect]
     Active Substance: RANITIDINE
     Dosage: UNK, (RANITIDINE) DAILY
     Route: 048
     Dates: start: 201703, end: 201807

REACTIONS (4)
  - Gastrointestinal carcinoma [Fatal]
  - Oesophageal carcinoma [Fatal]
  - Colorectal cancer [Fatal]
  - Gastric cancer [Fatal]

NARRATIVE: CASE EVENT DATE: 20190701
